FAERS Safety Report 10700085 (Version 1)
Quarter: 2015Q1

REPORT INFORMATION
  Report Type: Spontaneous
  Country: FR (occurrence: FR)
  Receive Date: 20150109
  Receipt Date: 20150109
  Transmission Date: 20150721
  Serious: Yes (Hospitalization)
  Sender: FDA-Public Use
  Company Number: FR-SA-2015SA001814

PATIENT
  Age: 32 Year
  Sex: Female
  Weight: 56 kg

DRUGS (34)
  1. FLUCONAZOLE. [Suspect]
     Active Substance: FLUCONAZOLE
     Indication: ANTIBIOTIC THERAPY
     Dosage: 2 MG/ML
     Route: 042
     Dates: start: 20140927, end: 20141005
  2. TAZOCILLINE [Suspect]
     Active Substance: PIPERACILLIN SODIUM\TAZOBACTAM SODIUM
     Indication: ANTIBIOTIC THERAPY
     Route: 042
     Dates: start: 20140913, end: 20140914
  3. CONTRAMAL [Suspect]
     Active Substance: TRAMADOL HYDROCHLORIDE
     Indication: PAIN
     Dosage: PARENTERAL OR PO IF PAIN
     Dates: start: 20140911, end: 20141014
  4. VANCOMYCINE [Concomitant]
     Active Substance: VANCOMYCIN
     Route: 042
     Dates: start: 20141007, end: 20141007
  5. METHOTREXATE [Concomitant]
     Active Substance: METHOTREXATE
     Indication: ECTOPIC PREGNANCY
  6. TAZOCILLINE [Suspect]
     Active Substance: PIPERACILLIN SODIUM\TAZOBACTAM SODIUM
     Indication: ANTIBIOTIC THERAPY
     Route: 042
     Dates: start: 20140922, end: 20141008
  7. GENTAMICIN ^PANPHARMA^ [Suspect]
     Active Substance: GENTAMICIN
     Indication: ANTIBIOTIC THERAPY
     Dosage: SEP14
     Route: 042
     Dates: start: 20140922, end: 20140929
  8. FLUCONAZOLE. [Suspect]
     Active Substance: FLUCONAZOLE
     Indication: ANTIBIOTIC THERAPY
     Dosage: 2 MG/ML
     Route: 042
     Dates: start: 20141010, end: 20141012
  9. CEFTRIAXONE. [Concomitant]
     Active Substance: CEFTRIAXONE
     Route: 042
     Dates: start: 20140912, end: 20140914
  10. MORPHINE SULFATE. [Concomitant]
     Active Substance: MORPHINE SULFATE
     Indication: PAIN
     Dosage: 2 TO 3 TIMES DAILY.
     Route: 042
  11. FLAGYL [Suspect]
     Active Substance: METRONIDAZOLE\METRONIDAZOLE HYDROCHLORIDE
     Route: 048
     Dates: start: 20141010, end: 20141013
  12. LOVENOX [Suspect]
     Active Substance: ENOXAPARIN SODIUM
     Route: 058
     Dates: start: 20140910, end: 20140914
  13. AMOXICILLIN. [Suspect]
     Active Substance: AMOXICILLIN
     Route: 048
     Dates: start: 20141010, end: 20141013
  14. CEFOTAXIME [Suspect]
     Active Substance: CEFOTAXIME\CEFOTAXIME SODIUM
     Route: 042
     Dates: start: 20141010, end: 20141013
  15. ACUPAN [Concomitant]
     Active Substance: NEFOPAM HYDROCHLORIDE
     Indication: PAIN
  16. GENTAMICIN ^PANPHARMA^ [Suspect]
     Active Substance: GENTAMICIN
     Indication: ANTIBIOTIC THERAPY
     Dosage: SEP14
     Route: 042
     Dates: start: 201409, end: 20140919
  17. GENTAMICIN ^PANPHARMA^ [Suspect]
     Active Substance: GENTAMICIN
     Indication: ANTIBIOTIC THERAPY
     Dosage: SEP14
     Route: 042
     Dates: start: 20141007, end: 20141008
  18. AMIKACIN [Concomitant]
     Active Substance: AMIKACIN
     Dates: start: 20141009
  19. TAZOCILLINE [Suspect]
     Active Substance: PIPERACILLIN SODIUM\TAZOBACTAM SODIUM
     Indication: ANTIBIOTIC THERAPY
     Route: 042
     Dates: start: 20140915, end: 20140921
  20. OXYNORM [Concomitant]
     Active Substance: OXYCODONE HYDROCHLORIDE
     Indication: PAIN
  21. GENTAMICIN ^PANPHARMA^ [Suspect]
     Active Substance: GENTAMICIN
     Indication: ANTIBIOTIC THERAPY
     Dosage: SEP14
     Route: 042
     Dates: start: 20140912
  22. EUPANTOL [Suspect]
     Active Substance: PANTOPRAZOLE SODIUM
     Route: 042
     Dates: start: 20140910, end: 20141007
  23. ECONAZOLE [Concomitant]
     Active Substance: ECONAZOLE
     Dates: start: 20140921, end: 20140921
  24. ECONAZOLE [Concomitant]
     Active Substance: ECONAZOLE
     Dates: start: 20140925, end: 20140929
  25. PARACETAMOL [Concomitant]
     Active Substance: ACETAMINOPHEN
     Dosage: STRENGTH: 10 MG/ML?DOSE: 3G DAILY.
     Route: 042
  26. SPASFON [Concomitant]
     Active Substance: PHLOROGLUCINOL
     Indication: PAIN
     Dosage: DOSE: 02 TO 06 VIALS DAILY, AS NEEDED.
     Route: 042
  27. ZOPHREN [Concomitant]
     Active Substance: ONDANSETRON
  28. ALPRAZOLAM. [Concomitant]
     Active Substance: ALPRAZOLAM
     Route: 048
  29. DECAPEPTYL [Concomitant]
     Active Substance: TRIPTORELIN ACETATE
     Indication: PREGNANCY
     Dosage: STRENGTH: 11,25 MG?PROLONGED RELEASE.
     Dates: start: 20140620
  30. FLAGYL [Suspect]
     Active Substance: METRONIDAZOLE\METRONIDAZOLE HYDROCHLORIDE
     Route: 048
     Dates: start: 20140930, end: 20141006
  31. AMOXICILLIN/CLAVULANIC ACID [Concomitant]
     Route: 042
     Dates: start: 20140922, end: 20140922
  32. OMIX [Concomitant]
     Active Substance: TAMSULOSIN HYDROCHLORIDE
     Dosage: STRENGTH: 0.4 MG, PROLONGED RELEASE MICROGRANULES IN CAPSULE.?DOSE: 1 TO 2 DF
     Route: 048
  33. TRANXENE T-TAB [Concomitant]
     Active Substance: CLORAZEPATE DIPOTASSIUM
     Dosage: ROUTE: PO OR IV NOS
  34. MEROPENEM. [Concomitant]
     Active Substance: MEROPENEM
     Dates: start: 20141009

REACTIONS (14)
  - Thrombocytopenia [Recovered/Resolved]
  - Blood triglycerides increased [Recovered/Resolved]
  - Rash [Recovered/Resolved]
  - Serum ferritin increased [Recovered/Resolved]
  - Neutropenia [Recovered/Resolved]
  - Eosinophilia [Recovered/Resolved]
  - Pancytopenia [Recovered/Resolved]
  - Anaemia [Recovered/Resolved]
  - Leukopenia [Recovered/Resolved]
  - Drug reaction with eosinophilia and systemic symptoms [Recovered/Resolved]
  - Aspartate aminotransferase increased [Recovered/Resolved]
  - Pyrexia [Recovered/Resolved]
  - Transaminases increased [Recovered/Resolved]
  - Blood creatine phosphokinase increased [Recovered/Resolved]

NARRATIVE: CASE EVENT DATE: 20141008
